FAERS Safety Report 4851980-1 (Version None)
Quarter: 2005Q4

REPORT INFORMATION
  Report Type: 
  Country: None (occurrence: None)
  Receive Date: 20051213
  Receipt Date: 20051129
  Transmission Date: 20060501
  Serious: Yes (Other)
  Sender: FDA-Public Use
  Company Number: PHBS2005GR17789

PATIENT
  Age: 68 Year
  Sex: Male

DRUGS (2)
  1. AREDIA [Suspect]
     Indication: MULTIPLE MYELOMA
     Dosage: EVERY 28 DAYS
     Dates: start: 20010904, end: 20050112
  2. ZOMETA [Suspect]
     Indication: MULTIPLE MYELOMA
     Dosage: 4 MG, EVERY 28 DAYS
     Route: 042
     Dates: start: 20010904, end: 20050112

REACTIONS (1)
  - OSTEONECROSIS [None]
